FAERS Safety Report 6918775-6 (Version None)
Quarter: 2010Q3

REPORT INFORMATION
  Report Type: 
  Country: None (occurrence: None)
  Receive Date: 20100811
  Receipt Date: 20100708
  Transmission Date: 20110219
  Serious: No
  Sender: FDA-Public Use
  Company Number: US-BAYER-201018185BCC

PATIENT
  Age: 76 Year
  Sex: Male
  Weight: 79 kg

DRUGS (13)
  1. ALEVE (CAPLET) [Suspect]
     Indication: ARTHRALGIA
     Dosage: TOTAL DAILY DOSE: 220 MG  UNIT DOSE: 220 MG
     Route: 048
     Dates: start: 20100601
  2. LISINOPRIL AND HYDROCHLOROTHIAZIDE [Concomitant]
     Route: 065
  3. TERAZOSIN HCL [Concomitant]
     Route: 065
  4. ATENOLOL [Concomitant]
     Route: 065
  5. FLONASE [Concomitant]
     Route: 065
  6. CO Q10 [Concomitant]
     Route: 065
  7. VITAMIN E [Concomitant]
     Route: 065
  8. FISH OIL [Concomitant]
     Route: 065
  9. FLAX SEED OIL [Concomitant]
     Route: 065
  10. VITAMIN B6 [Concomitant]
     Route: 065
  11. VITAMIN B-12 [Concomitant]
     Route: 065
  12. FOLIC ACID [Concomitant]
     Route: 065
  13. ZOCOR [Concomitant]
     Route: 065

REACTIONS (1)
  - PRURITUS GENERALISED [None]
